FAERS Safety Report 5198485-9 (Version None)
Quarter: 2007Q1

REPORT INFORMATION
  Report Type: 
  Country: None (occurrence: None)
  Receive Date: 20070104
  Receipt Date: 20061221
  Transmission Date: 20070707
  Serious: Yes (Other)
  Sender: FDA-Public Use
  Company Number: GSK493

PATIENT
  Age: 24 Year
  Sex: Female

DRUGS (6)
  1. SOLPADEINE [Suspect]
     Route: 048
  2. ETHANOL [Suspect]
     Indication: DRUG USE FOR UNKNOWN INDICATION
     Route: 065
  3. TRAMADOL HCL [Suspect]
     Route: 065
  4. ALPRAZOLAM [Suspect]
     Route: 065
  5. RANITIDINE [Suspect]
     Route: 065
  6. CLONIXIN [Suspect]
     Route: 065

REACTIONS (3)
  - INTENTIONAL OVERDOSE [None]
  - SOMNOLENCE [None]
  - VOMITING [None]
